FAERS Safety Report 5056878-4 (Version None)
Quarter: 2006Q2

REPORT INFORMATION
  Report Type: 
  Country: None (occurrence: None)
  Receive Date: 20060622
  Receipt Date: 20050510
  Transmission Date: 20061013
  Serious: Yes (Hospitalization, Other)
  Sender: FDA-Public Use
  Company Number: US-JNJFOC-20050502347

PATIENT
  Age: 20 Year
  Sex: Male

DRUGS (2)
  1. DURAGESIC-100 [Suspect]
     Indication: INTENTIONAL DRUG MISUSE
     Dosage: TRANSDERMAL
     Route: 062
  2. FENTANYL [Suspect]
     Indication: INTENTIONAL DRUG MISUSE

REACTIONS (2)
  - DIZZINESS [None]
  - DRUG ABUSER [None]
